FAERS Safety Report 8222473-9 (Version None)
Quarter: 2012Q1

REPORT INFORMATION
  Report Type: 
  Country: None (occurrence: None)
  Receive Date: 20120320
  Receipt Date: 20120312
  Transmission Date: 20120608
  Serious: Yes (Hospitalization, Other)
  Sender: FDA-Public Use
  Company Number: US-BAYER-2011-101044

PATIENT
  Age: 27 Year
  Sex: Female
  Weight: 72.562 kg

DRUGS (8)
  1. YAZ [Suspect]
     Indication: PREMENSTRUAL SYNDROME
  2. LAMICTAL [Concomitant]
  3. TIZANIDINE HCL [Concomitant]
  4. FIORICET [Concomitant]
  5. LAMOTRIGINE [Concomitant]
  6. ZANAFLEX [Concomitant]
  7. YASMIN [Suspect]
     Indication: PREMENSTRUAL SYNDROME
  8. LEVAQUIN [Concomitant]

REACTIONS (6)
  - BILIARY COLIC [None]
  - ANXIETY [None]
  - CHOLECYSTITIS ACUTE [None]
  - EMOTIONAL DISTRESS [None]
  - CHEST PAIN [None]
  - GENERAL PHYSICAL HEALTH DETERIORATION [None]
